FAERS Safety Report 9347085 (Version 1)
Quarter: 2013Q2

REPORT INFORMATION
  Report Type: Spontaneous
  Country: US (occurrence: US)
  Receive Date: 20130613
  Receipt Date: 20130613
  Transmission Date: 20140414
  Serious: Yes (Other)
  Sender: FDA-Public Use
  Company Number: US-OTSUKA-US-2013-10120

PATIENT
  Age: 50 Year
  Sex: Female

DRUGS (1)
  1. SAMSCA [Suspect]
     Indication: PRODUCT USED FOR UNKNOWN INDICATION
     Dosage: 15 MG MILLIGRAM(S), SINGLE

REACTIONS (1)
  - Blood creatinine increased [Unknown]
